FAERS Safety Report 21575981 (Version 1)
Quarter: 2022Q4

REPORT INFORMATION
  Report Type: Spontaneous
  Country: AU (occurrence: AU)
  Receive Date: 20221110
  Receipt Date: 20221110
  Transmission Date: 20230113
  Serious: Yes (Life-Threatening, Other)
  Sender: FDA-Public Use
  Company Number: AU-PFIZER INC-PV202200098858

PATIENT
  Age: 59 Year
  Sex: Male
  Weight: 79 kg

DRUGS (1)
  1. ROCURONIUM BROMIDE [Suspect]
     Active Substance: ROCURONIUM BROMIDE
     Indication: Hypotonia
     Dosage: 50 MG
     Route: 042

REACTIONS (2)
  - Cough [Recovered/Resolved]
  - Kounis syndrome [Recovered/Resolved]
